FAERS Safety Report 8692399 (Version 3)
Quarter: 2012Q4

REPORT INFORMATION
  Report Type: Report from Study
  Country: DE (occurrence: JP)
  Receive Date: 20120730
  Receipt Date: 20120830
  Transmission Date: 20130627
  Serious: Yes (Other)
  Sender: FDA-Public Use
  Company Number: JP-FRI-1000037301

PATIENT
  Sex: Male

DRUGS (8)
  1. MEMANTINE [Suspect]
     Indication: DEMENTIA ALZHEIMER^S TYPE
     Dosage: 5 mg
     Route: 048
     Dates: start: 20120607, end: 20120613
  2. MEMANTINE [Suspect]
     Dosage: 10 mg
     Route: 048
     Dates: start: 20120614, end: 20120620
  3. MEMANTINE [Suspect]
     Dosage: 15 mg
     Route: 048
     Dates: start: 20120621, end: 20120627
  4. FOLIAMIN [Concomitant]
     Dosage: 15 mg
     Route: 048
     Dates: start: 20120412
  5. METHYCOBAL [Concomitant]
     Dosage: 1500 ug
     Route: 048
     Dates: start: 20120412
  6. SENNOSIDE [Concomitant]
     Route: 048
     Dates: start: 20120627
  7. DONEPEZIL HYDROCHLORIDE [Concomitant]
     Indication: DEMENTIA ALZHEIMER^S TYPE
     Dosage: 3 mg
     Route: 048
     Dates: start: 20110721, end: 20110803
  8. DONEPEZIL HYDROCHLORIDE [Concomitant]
     Dosage: 5 mg
     Route: 048
     Dates: start: 20110804

REACTIONS (5)
  - Constipation [Unknown]
  - Blood bilirubin increased [Unknown]
  - Somnolence [Unknown]
  - Hypophagia [None]
  - Ocular icterus [None]
